FAERS Safety Report 5762149-0 (Version None)
Quarter: 2008Q2

REPORT INFORMATION
  Report Type: 
  Country: None (occurrence: None)
  Receive Date: 20080604
  Receipt Date: 20080602
  Transmission Date: 20081010
  Serious: Yes (Hospitalization)
  Sender: FDA-Public Use
  Company Number: GXKR2008GB04130

PATIENT
  Age: 53 Year
  Sex: Female

DRUGS (6)
  1. ACETAMINOPHEN [Suspect]
     Dosage: 4 OR 5 TABLETS,
  2. LYRICA [Suspect]
     Dosage: 100 MG, TID, ORAL; UP TO 20 TABLETS
     Route: 048
     Dates: end: 20080417
  3. AMLODIPINE [Concomitant]
  4. ATENOLOL [Concomitant]
  5. SIMVASTATIN [Concomitant]
  6. TRAZODONE HCL [Concomitant]

REACTIONS (3)
  - ALCOHOL USE [None]
  - BLOOD CREATINE PHOSPHOKINASE INCREASED [None]
  - MULTIPLE DRUG OVERDOSE [None]
